FAERS Safety Report 6314776-X (Version None)
Quarter: 2009Q3

REPORT INFORMATION
  Report Type: 
  Country: None (occurrence: None)
  Receive Date: 20090819
  Receipt Date: 20090814
  Transmission Date: 20100115
  Serious: Yes (Other)
  Sender: FDA-Public Use
  Company Number: US-ASTRAZENECA-2009SE08117

PATIENT
  Sex: Male

DRUGS (2)
  1. CRESTOR [Suspect]
     Route: 048
  2. COUMADIN [Concomitant]

REACTIONS (1)
  - RENAL FAILURE [None]
